FAERS Safety Report 9806444 (Version 1)
Quarter: 2014Q1

REPORT INFORMATION
  Report Type: Spontaneous
  Country: US (occurrence: US)
  Receive Date: 20140109
  Receipt Date: 20140109
  Transmission Date: 20141002
  Serious: Yes (Death)
  Sender: FDA-Public Use
  Company Number: US-ASTRAZENECA-2014SE01729

PATIENT
  Age: 57 Year
  Sex: Male

DRUGS (5)
  1. ATENOLOL [Suspect]
     Route: 048
  2. ACETAMINOPHEN(NON AZ PRODUCT) [Suspect]
     Route: 048
  3. VERAPAMIL [Suspect]
     Route: 048
  4. CARISOPRODOL [Suspect]
     Route: 048
  5. OPIOID [Suspect]
     Route: 048

REACTIONS (2)
  - Toxicity to various agents [Fatal]
  - Completed suicide [Fatal]
